FAERS Safety Report 17087232 (Version 1)
Quarter: 2019Q4

REPORT INFORMATION
  Report Type: Spontaneous
  Country: NL (occurrence: NL)
  Receive Date: 20191128
  Receipt Date: 20191128
  Transmission Date: 20200122
  Serious: Yes (Hospitalization)
  Sender: FDA-Public Use
  Company Number: NL-ACCORD-162526

PATIENT
  Age: 66 Year
  Sex: Male
  Weight: 73 kg

DRUGS (2)
  1. ROSUVASTATIN. [Suspect]
     Active Substance: ROSUVASTATIN
     Indication: HYPERCHOLESTEROLAEMIA
     Dosage: 1X DAILY 1, STRENGTH-20 MG
     Dates: start: 2016
  2. EZETROL [Interacting]
     Active Substance: EZETIMIBE
     Indication: HYPERCHOLESTEROLAEMIA
     Dosage: 1X DAILY 1, STRENGTH- 10 MG
     Dates: start: 2014

REACTIONS (2)
  - Pancreatitis [Recovered/Resolved]
  - Drug interaction [Unknown]

NARRATIVE: CASE EVENT DATE: 20190915
